FAERS Safety Report 7183681-1 (Version None)
Quarter: 2010Q4

REPORT INFORMATION
  Report Type: 
  Country: None (occurrence: None)
  Receive Date: 20101220
  Receipt Date: 20101220
  Transmission Date: 20110411
  Serious: Yes (Hospitalization)
  Sender: FDA-Public Use
  Company Number: None

PATIENT
  Age: 77 Year
  Sex: Male
  Weight: 85 kg

DRUGS (12)
  1. ASPIRIN [Suspect]
     Indication: CAROTID ARTERY STENOSIS
     Dosage: 81MG DAILY PO CHRONIC
     Route: 048
     Dates: start: 20091201
  2. PLAVIX [Suspect]
     Indication: CAROTID ARTERY STENOSIS
     Dosage: 75MG DAILY PO CHRONIC
     Route: 048
     Dates: start: 20091201
  3. ATENOLOL [Concomitant]
  4. AVANDIA [Concomitant]
  5. CENTRUM [Concomitant]
  6. FOLBIC [Concomitant]
  7. FINASTERIDE [Concomitant]
  8. FOLIC ACID [Concomitant]
  9. GLIPIZIDE [Concomitant]
  10. LISINOPRIL [Concomitant]
  11. ZOCOR [Concomitant]
  12. AMARL [Concomitant]

REACTIONS (4)
  - GASTRIC ULCER [None]
  - GASTRITIS EROSIVE [None]
  - HAEMATOCRIT DECREASED [None]
  - UPPER GASTROINTESTINAL HAEMORRHAGE [None]
